FAERS Safety Report 19024473 (Version 1)
Quarter: 2021Q1

REPORT INFORMATION
  Report Type: Spontaneous
  Country: US (occurrence: US)
  Receive Date: 20210317
  Receipt Date: 20210317
  Transmission Date: 20210420
  Serious: Yes (Hospitalization)
  Sender: FDA-Public Use
  Company Number: US-009507513-2103USA003048

PATIENT
  Sex: Female
  Weight: 64.41 kg

DRUGS (1)
  1. PRINIVIL [Suspect]
     Active Substance: LISINOPRIL
     Dosage: UNK
     Route: 048

REACTIONS (3)
  - Nightmare [Unknown]
  - Adverse event [Unknown]
  - Heart rate increased [Unknown]
